FAERS Safety Report 21784805 (Version 1)
Quarter: 2022Q4

REPORT INFORMATION
  Report Type: Spontaneous
  Country: IT (occurrence: None)
  Receive Date: 20221227
  Receipt Date: 20221227
  Transmission Date: 20230112
  Serious: Yes (Hospitalization)
  Sender: FDA-Public Use
  Company Number: 2022A411782

PATIENT
  Age: 74 Year
  Sex: Male

DRUGS (36)
  1. QUETIAPINE [Suspect]
     Active Substance: QUETIAPINE
     Indication: Obsessive rumination
     Dosage: 75.0MG UNKNOWN
     Route: 048
  2. QUETIAPINE [Suspect]
     Active Substance: QUETIAPINE
     Indication: Feelings of worthlessness
     Dosage: 75.0MG UNKNOWN
     Route: 048
  3. QUETIAPINE [Suspect]
     Active Substance: QUETIAPINE
     Indication: Apathy
     Dosage: 75.0MG UNKNOWN
     Route: 048
  4. QUETIAPINE [Suspect]
     Active Substance: QUETIAPINE
     Indication: Somatic dysfunction
     Dosage: 75.0MG UNKNOWN
     Route: 048
  5. QUETIAPINE [Suspect]
     Active Substance: QUETIAPINE
     Indication: Anxiety
     Dosage: 75.0MG UNKNOWN
     Route: 048
  6. QUETIAPINE [Suspect]
     Active Substance: QUETIAPINE
     Indication: Depressed mood
     Dosage: 75.0MG UNKNOWN
     Route: 048
  7. QUETIAPINE [Suspect]
     Active Substance: QUETIAPINE
     Indication: Obsessive rumination
     Dosage: 100.0MG UNKNOWN
     Route: 048
  8. QUETIAPINE [Suspect]
     Active Substance: QUETIAPINE
     Indication: Feelings of worthlessness
     Dosage: 100.0MG UNKNOWN
     Route: 048
  9. QUETIAPINE [Suspect]
     Active Substance: QUETIAPINE
     Indication: Apathy
     Dosage: 100.0MG UNKNOWN
     Route: 048
  10. QUETIAPINE [Suspect]
     Active Substance: QUETIAPINE
     Indication: Somatic dysfunction
     Dosage: 100.0MG UNKNOWN
     Route: 048
  11. QUETIAPINE [Suspect]
     Active Substance: QUETIAPINE
     Indication: Anxiety
     Dosage: 100.0MG UNKNOWN
     Route: 048
  12. QUETIAPINE [Suspect]
     Active Substance: QUETIAPINE
     Indication: Depressed mood
     Dosage: 100.0MG UNKNOWN
     Route: 048
  13. CITALOPRAM [Suspect]
     Active Substance: CITALOPRAM HYDROBROMIDE
     Indication: Apathy
     Dosage: 20.0MG UNKNOWN
     Route: 065
  14. CITALOPRAM [Suspect]
     Active Substance: CITALOPRAM HYDROBROMIDE
     Indication: Depressed mood
     Dosage: 20.0MG UNKNOWN
     Route: 065
  15. CITALOPRAM [Suspect]
     Active Substance: CITALOPRAM HYDROBROMIDE
     Indication: Feelings of worthlessness
     Dosage: 20.0MG UNKNOWN
     Route: 065
  16. CITALOPRAM [Suspect]
     Active Substance: CITALOPRAM HYDROBROMIDE
     Indication: Obsessive rumination
     Dosage: 20.0MG UNKNOWN
     Route: 065
  17. CITALOPRAM [Suspect]
     Active Substance: CITALOPRAM HYDROBROMIDE
     Indication: Anxiety
     Dosage: 20.0MG UNKNOWN
     Route: 065
  18. CITALOPRAM [Suspect]
     Active Substance: CITALOPRAM HYDROBROMIDE
     Indication: Somatic dysfunction
     Dosage: 20.0MG UNKNOWN
     Route: 065
  19. CITALOPRAM [Suspect]
     Active Substance: CITALOPRAM HYDROBROMIDE
     Indication: Apathy
     Dosage: 30.0MG UNKNOWN
     Route: 065
  20. CITALOPRAM [Suspect]
     Active Substance: CITALOPRAM HYDROBROMIDE
     Indication: Depressed mood
     Dosage: 30.0MG UNKNOWN
     Route: 065
  21. CITALOPRAM [Suspect]
     Active Substance: CITALOPRAM HYDROBROMIDE
     Indication: Feelings of worthlessness
     Dosage: 30.0MG UNKNOWN
     Route: 065
  22. CITALOPRAM [Suspect]
     Active Substance: CITALOPRAM HYDROBROMIDE
     Indication: Obsessive rumination
     Dosage: 30.0MG UNKNOWN
     Route: 065
  23. CITALOPRAM [Suspect]
     Active Substance: CITALOPRAM HYDROBROMIDE
     Indication: Anxiety
     Dosage: 30.0MG UNKNOWN
     Route: 065
  24. CITALOPRAM [Suspect]
     Active Substance: CITALOPRAM HYDROBROMIDE
     Indication: Somatic dysfunction
     Dosage: 30.0MG UNKNOWN
     Route: 065
  25. LORAZEPAM [Suspect]
     Active Substance: LORAZEPAM
     Indication: Anxiety
     Dosage: 2.5MG UNKNOWN
     Route: 065
  26. LORAZEPAM [Suspect]
     Active Substance: LORAZEPAM
     Indication: Depressed mood
     Dosage: 2.5MG UNKNOWN
     Route: 065
  27. LORAZEPAM [Suspect]
     Active Substance: LORAZEPAM
     Indication: Somatic dysfunction
     Dosage: 2.5MG UNKNOWN
     Route: 065
  28. LORAZEPAM [Suspect]
     Active Substance: LORAZEPAM
     Indication: Feelings of worthlessness
     Dosage: 2.5MG UNKNOWN
     Route: 065
  29. LORAZEPAM [Suspect]
     Active Substance: LORAZEPAM
     Indication: Apathy
     Dosage: 2.5MG UNKNOWN
     Route: 065
  30. LORAZEPAM [Suspect]
     Active Substance: LORAZEPAM
     Indication: Obsessive rumination
     Dosage: 2.5MG UNKNOWN
     Route: 065
  31. VORTIOXETINE [Suspect]
     Active Substance: VORTIOXETINE
     Indication: Anxiety
     Route: 065
  32. VORTIOXETINE [Suspect]
     Active Substance: VORTIOXETINE
     Indication: Apathy
     Route: 065
  33. VORTIOXETINE [Suspect]
     Active Substance: VORTIOXETINE
     Indication: Somatic dysfunction
     Route: 065
  34. VORTIOXETINE [Suspect]
     Active Substance: VORTIOXETINE
     Indication: Obsessive rumination
     Route: 065
  35. VORTIOXETINE [Suspect]
     Active Substance: VORTIOXETINE
     Indication: Feelings of worthlessness
     Route: 065
  36. VORTIOXETINE [Suspect]
     Active Substance: VORTIOXETINE
     Indication: Depressed mood
     Route: 065

REACTIONS (3)
  - Negativism [Recovered/Resolved]
  - Condition aggravated [Recovered/Resolved]
  - Drug ineffective [Unknown]
